FAERS Safety Report 9012590 (Version 2)
Quarter: 2013Q1

REPORT INFORMATION
  Report Type: Spontaneous
  Country: CA (occurrence: CA)
  Receive Date: 20130114
  Receipt Date: 20130201
  Transmission Date: 20140127
  Serious: Yes (Other)
  Sender: FDA-Public Use
  Company Number: CA-JNJFOC-20130105405

PATIENT
  Sex: 0

DRUGS (1)
  1. INFLIXIMAB, RECOMBINANT [Suspect]
     Indication: INFLAMMATORY BOWEL DISEASE
     Route: 042

REACTIONS (11)
  - Staphylococcal infection [Unknown]
  - Epididymitis [Unknown]
  - Anaphylactic reaction [Unknown]
  - Impetigo [Unknown]
  - Systemic lupus erythematosus [Unknown]
  - Serum sickness [Unknown]
  - Oral herpes [Unknown]
  - Lung infection [Unknown]
  - Therapeutic response decreased [Unknown]
  - Hypersensitivity [Unknown]
  - Adverse event [Unknown]
